FAERS Safety Report 25389858 (Version 1)
Quarter: 2025Q2

REPORT INFORMATION
  Report Type: Spontaneous
  Country: US (occurrence: None)
  Receive Date: 20250602
  Receipt Date: 20250602
  Transmission Date: 20250716
  Serious: Yes (Death)
  Sender: FDA-CTU
  Company Number: None

PATIENT
  Age: 74 Year
  Sex: Male

DRUGS (11)
  1. LENALIDOMIDE [Suspect]
     Active Substance: LENALIDOMIDE
     Indication: Plasma cell myeloma
     Dosage: FREQUENCY : DAILY;?
     Route: 048
     Dates: start: 20241205, end: 20250602
  2. ACETAMIN TAB [Concomitant]
  3. ACYCLOVIR TAB [Concomitant]
  4. ASPIRIN LOW TAB 81 [Concomitant]
  5. CALCIUM 1000 TAB+ D [Concomitant]
  6. DEXAMETHASON TAB [Concomitant]
  7. FERROUS SULF TAB [Concomitant]
  8. FLUTICASONE [Concomitant]
     Active Substance: FLUTICASONE
  9. GABAPENTIN [Concomitant]
     Active Substance: GABAPENTIN
  10. IBUPROFEN TAB [Concomitant]
  11. LEVOTHYROXIN TAB [Concomitant]

REACTIONS (1)
  - Death [None]

NARRATIVE: CASE EVENT DATE: 20250601
